FAERS Safety Report 12114353 (Version 1)
Quarter: 2016Q1

REPORT INFORMATION
  Report Type: Report from Study
  Country: None (occurrence: DE)
  Receive Date: 20160225
  Receipt Date: 20160225
  Transmission Date: 20160526
  Serious: Yes (Death, Hospitalization, Other)
  Sender: FDA-Public Use
  Company Number: DE-BAUSCH-BL-2016-003786

PATIENT
  Age: 60 Year
  Sex: Male

DRUGS (2)
  1. SOFOSBUVIR [Suspect]
     Active Substance: SOFOSBUVIR
     Indication: CHRONIC HEPATITIS C
     Route: 048
  2. RIBAVIRIN. [Suspect]
     Active Substance: RIBAVIRIN
     Indication: CHRONIC HEPATITIS C
     Route: 048

REACTIONS (8)
  - Bacterial infection [Unknown]
  - Gastrointestinal haemorrhage [Fatal]
  - Lactic acidosis [Fatal]
  - Condition aggravated [Unknown]
  - Hepatic encephalopathy [Unknown]
  - Renal failure [Unknown]
  - Ascites [Unknown]
  - Hepatic failure [Unknown]
